FAERS Safety Report 9602084 (Version 1)
Quarter: 2013Q4

REPORT INFORMATION
  Report Type: Spontaneous
  Country: FR (occurrence: None)
  Receive Date: 20131002
  Receipt Date: 20131002
  Transmission Date: 20140711
  Serious: Yes (Hospitalization)
  Sender: FDA-Public Use
  Company Number: FK201304334

PATIENT
  Age: 58 Year
  Sex: Male

DRUGS (1)
  1. PACLITAXEL [Suspect]
     Indication: SQUAMOUS CELL CARCINOMA
     Dosage: 125 MG, INTRAVENOUS (NOT OTHERWISE SPECIFIED)
     Route: 042
     Dates: start: 20130626, end: 20130626

REACTIONS (6)
  - Dyspnoea [None]
  - Bronchospasm [None]
  - Tachycardia [None]
  - Hyperhidrosis [None]
  - Blood pressure increased [None]
  - Oxygen saturation decreased [None]
